FAERS Safety Report 8121369-0 (Version None)
Quarter: 2012Q1

REPORT INFORMATION
  Report Type: 
  Country: None (occurrence: None)
  Receive Date: 20120203
  Receipt Date: 20120125
  Transmission Date: 20120608
  Serious: Yes (Hospitalization)
  Sender: FDA-Public Use
  Company Number: TCI2011A02616

PATIENT
  Age: 57 Year
  Sex: Female

DRUGS (11)
  1. ACTOS [Suspect]
     Indication: TYPE 2 DIABETES MELLITUS
     Dosage: 15 MG (15 MG, 1 - 2) 30 MG (10 MG, 3 - 15 MG (15 MG, 1 D) ORAL
     Route: 048
     Dates: start: 20091106
  2. METFORMIN HCL [Concomitant]
  3. CILNIDIPINE [Concomitant]
  4. NATEGLINIDE [Concomitant]
  5. ASRARN (LISINOPRIL) [Concomitant]
  6. VOGLIBOSE OD (VOGLIBOSE) [Concomitant]
  7. CRESTOR [Concomitant]
  8. GLUFAST (MITIGLINIDE CALCIUM) [Suspect]
     Indication: TYPE 2 DIABETES MELLITUS
     Dosage: PER ORAL
     Dates: start: 20100302
  9. RISEDRONATE SODIUM [Concomitant]
  10. ATELEC (CILNIDIPINE) [Concomitant]
  11. EVISTA [Concomitant]

REACTIONS (2)
  - HYPOKALAEMIA [None]
  - ASTHENIA [None]
